FAERS Safety Report 17801016 (Version 29)
Quarter: 2025Q2

REPORT INFORMATION
  Report Type: Report from Study
  Country: US (occurrence: US)
  Receive Date: 20200519
  Receipt Date: 20250620
  Transmission Date: 20250717
  Serious: Yes (Other)
  Sender: TAKEDA
  Company Number: US-SHIRE-US202016565

PATIENT
  Age: 67 Year
  Sex: Female
  Weight: 115 kg

DRUGS (35)
  1. HUMAN IMMUNOGLOBULIN G [Suspect]
     Active Substance: HUMAN IMMUNOGLOBULIN G
     Indication: Immunodeficiency common variable
     Dosage: 16 GRAM, 1/WEEK
     Dates: start: 20200429
  2. HUMAN IMMUNOGLOBULIN G [Suspect]
     Active Substance: HUMAN IMMUNOGLOBULIN G
     Indication: Primary immunodeficiency syndrome
     Dosage: 16 GRAM, 1/WEEK
  3. HUMAN IMMUNOGLOBULIN G [Suspect]
     Active Substance: HUMAN IMMUNOGLOBULIN G
     Dosage: 16 GRAM, 1/WEEK
     Dates: start: 20200527
  4. HUMAN IMMUNOGLOBULIN G [Suspect]
     Active Substance: HUMAN IMMUNOGLOBULIN G
     Dosage: 8 GRAM, 2/WEEK
  5. GAMMAGARD LIQUID [Suspect]
     Active Substance: HUMAN IMMUNOGLOBULIN G
     Indication: Primary immunodeficiency syndrome
  6. GAMMAGARD LIQUID [Suspect]
     Active Substance: HUMAN IMMUNOGLOBULIN G
     Indication: Immunodeficiency common variable
  7. HIZENTRA [Suspect]
     Active Substance: HUMAN IMMUNOGLOBULIN G
     Indication: Product used for unknown indication
  8. DIPHENHYDRAMINE [Concomitant]
     Active Substance: DIPHENHYDRAMINE
  9. ATENOLOL [Concomitant]
     Active Substance: ATENOLOL
  10. VITAMIN D3 [Concomitant]
     Active Substance: CHOLECALCIFEROL
  11. EPINEPHRINE [Concomitant]
     Active Substance: EPINEPHRINE
  12. LEVOTHYROXINE [Concomitant]
     Active Substance: LEVOTHYROXINE
  13. ROPINIROLE [Concomitant]
     Active Substance: ROPINIROLE
  14. LIDOCAINE AND PRILOCAINE [Concomitant]
     Active Substance: LIDOCAINE\PRILOCAINE
  15. ASPIRIN [Concomitant]
     Active Substance: ASPIRIN
  16. ACETAMINOPHEN [Concomitant]
     Active Substance: ACETAMINOPHEN
  17. METFORMIN HYDROCHLORIDE [Concomitant]
     Active Substance: METFORMIN HYDROCHLORIDE
  18. FERROUS SULFATE [Concomitant]
     Active Substance: FERROUS SULFATE
  19. MINERALS\VITAMINS [Concomitant]
     Active Substance: MINERALS\VITAMINS
  20. MAGNESIUM [Concomitant]
     Active Substance: MAGNESIUM
  21. DULOXETINE HYDROCHLORIDE [Concomitant]
     Active Substance: DULOXETINE HYDROCHLORIDE
  22. PRASTERONE [Concomitant]
     Active Substance: PRASTERONE
  23. LISINOPRIL AND HYDROCHLOROTHIAZIDE [Concomitant]
     Active Substance: HYDROCHLOROTHIAZIDE\LISINOPRIL
  24. CETIRIZINE [Concomitant]
     Active Substance: CETIRIZINE HYDROCHLORIDE
  25. CELECOXIB [Concomitant]
     Active Substance: CELECOXIB
  26. ALLOPURINOL [Concomitant]
     Active Substance: ALLOPURINOL
  27. VITAMIN B [Concomitant]
     Active Substance: VITAMIN B
  28. AVONEX [Concomitant]
     Active Substance: INTERFERON BETA-1A
  29. LEVOTHYROXINE SODIUM [Concomitant]
     Active Substance: LEVOTHYROXINE SODIUM
  30. TIZANIDINE HYDROCHLORIDE [Concomitant]
     Active Substance: TIZANIDINE HYDROCHLORIDE
  31. ROPINIROLE HYDROCHLORIDE [Concomitant]
     Active Substance: ROPINIROLE HYDROCHLORIDE
  32. CETIRIZINE HCL [Concomitant]
     Active Substance: CETIRIZINE HYDROCHLORIDE
  33. OXYCODONE HYDROCHLORIDE [Concomitant]
     Active Substance: OXYCODONE HYDROCHLORIDE
  34. DIPHENHYDRAMINE HYDROCHLORIDE [Concomitant]
     Active Substance: DIPHENHYDRAMINE HYDROCHLORIDE
  35. Lmx [Concomitant]

REACTIONS (40)
  - Osteonecrosis [Unknown]
  - Cataract [Unknown]
  - Wound infection staphylococcal [Unknown]
  - Gastrointestinal fungal infection [Unknown]
  - Pneumonia [Unknown]
  - Neoplasm malignant [Unknown]
  - Loss of consciousness [Unknown]
  - Diabetes mellitus [Unknown]
  - Gingival swelling [Unknown]
  - Allergy to chemicals [Unknown]
  - Arteriosclerosis [Unknown]
  - Limb injury [Not Recovered/Not Resolved]
  - Localised infection [Recovering/Resolving]
  - COVID-19 [Unknown]
  - Infection [Unknown]
  - Fibromyalgia [Unknown]
  - Memory impairment [Unknown]
  - Gastrointestinal disorder [Unknown]
  - Herpes zoster [Unknown]
  - Infusion related reaction [Unknown]
  - Product dose omission issue [Unknown]
  - Fall [Unknown]
  - Head injury [Unknown]
  - Viral rash [Not Recovered/Not Resolved]
  - Haemorrhage [Unknown]
  - Rash macular [Unknown]
  - Skin bacterial infection [Unknown]
  - Skin infection [Not Recovered/Not Resolved]
  - Breast mass [Unknown]
  - Infusion site discomfort [Unknown]
  - Oedema [Unknown]
  - Dizziness [Unknown]
  - Nausea [Not Recovered/Not Resolved]
  - Headache [Not Recovered/Not Resolved]
  - Rash [Not Recovered/Not Resolved]
  - Nasopharyngitis [Recovering/Resolving]
  - Post procedural complication [Unknown]
  - Fungal infection [Unknown]
  - Hypoaesthesia [Unknown]
  - Red blood cell count decreased [Unknown]

NARRATIVE: CASE EVENT DATE: 20200704
